FAERS Safety Report 13389872 (Version 1)
Quarter: 2017Q1

REPORT INFORMATION
  Report Type: Spontaneous
  Country: IN (occurrence: IN)
  Receive Date: 20170331
  Receipt Date: 20170331
  Transmission Date: 20170429
  Serious: Yes (Life-Threatening, Hospitalization, Other)
  Sender: FDA-Public Use
  Company Number: IN-ALVOGEN-2015-ALVOGEN-016095

PATIENT
  Age: 46 Year
  Sex: Female
  Weight: 70 kg

DRUGS (17)
  1. FENTANYL. [Concomitant]
     Active Substance: FENTANYL
     Indication: GENERAL ANAESTHESIA
  2. NICARDIPINE [Interacting]
     Active Substance: NICARDIPINE
     Indication: HYPERTENSION
  3. PROPOFOL. [Concomitant]
     Active Substance: PROPOFOL
     Indication: GENERAL ANAESTHESIA
     Route: 042
  4. ATENOLOL. [Suspect]
     Active Substance: ATENOLOL
     Indication: HYPERTENSION
  5. MIDAZOLAM [Concomitant]
     Active Substance: MIDAZOLAM HYDROCHLORIDE
     Indication: GENERAL ANAESTHESIA
  6. VECURONIUM [Concomitant]
     Active Substance: VECURONIUM BROMIDE
     Indication: GENERAL ANAESTHESIA
     Route: 042
  7. LEVOTHYROXINE SODIUM. [Concomitant]
     Active Substance: LEVOTHYROXINE SODIUM
     Indication: HYPOTHYROIDISM
  8. PRAZOSIN [Interacting]
     Active Substance: PRAZOSIN
     Indication: HYPERTENSION
  9. ISOFLURANE. [Concomitant]
     Active Substance: ISOFLURANE
  10. ATENOLOL. [Interacting]
     Active Substance: ATENOLOL
     Indication: HYPERTENSION
  11. NITROUS OXIDE. [Concomitant]
     Active Substance: NITROUS OXIDE
  12. LOSARTAN. [Interacting]
     Active Substance: LOSARTAN
     Indication: HYPERTENSION
  13. PRAZOSIN [Interacting]
     Active Substance: PRAZOSIN
     Indication: HYPERTENSION
  14. LOSARTAN. [Interacting]
     Active Substance: LOSARTAN
     Indication: HYPERTENSION
  15. CEFUROXIME. [Suspect]
     Active Substance: CEFUROXIME
     Indication: PRODUCT USED FOR UNKNOWN INDICATION
     Dosage: 1.5 G DILUTED IN 20 ML OF STERILE WATER
     Route: 042
  16. NICARDIPINE [Interacting]
     Active Substance: NICARDIPINE
     Indication: HYPERTENSION
  17. OXYGEN. [Concomitant]
     Active Substance: OXYGEN

REACTIONS (3)
  - Bradycardia [Recovered/Resolved]
  - Anaphylactic shock [Recovered/Resolved]
  - Drug interaction [Recovered/Resolved]
